FAERS Safety Report 5503899-0 (Version None)
Quarter: 2007Q4

REPORT INFORMATION
  Report Type: 
  Country: None (occurrence: None)
  Receive Date: 20071030
  Receipt Date: 20071030
  Transmission Date: 20080405
  Serious: Yes (Other)
  Sender: FDA-Public Use
  Company Number: None

PATIENT
  Age: 32 Year
  Sex: Female
  Weight: 112.0385 kg

DRUGS (1)
  1. TRAZODONE HCL [Suspect]
     Indication: INSOMNIA
     Dosage: 50 MG 1 X DAY PO
     Route: 048
     Dates: start: 20070716, end: 20071026

REACTIONS (5)
  - HEADACHE [None]
  - HYPOACUSIS [None]
  - MALAISE [None]
  - VISION BLURRED [None]
  - VOMITING [None]
